FAERS Safety Report 18055300 (Version 1)
Quarter: 2020Q3

REPORT INFORMATION
  Report Type: Spontaneous
  Country: US (occurrence: US)
  Receive Date: 20200722
  Receipt Date: 20200722
  Transmission Date: 20201103
  Serious: Yes (Hospitalization, Other)
  Sender: FDA-Public Use
  Company Number: US-APOTEX-2020AP013994

PATIENT
  Age: 35 Year
  Sex: Female

DRUGS (3)
  1. ACYCLOVIR. [Suspect]
     Active Substance: ACYCLOVIR
     Indication: ENCEPHALITIS
     Dosage: UNK
     Route: 065
  2. CEFTRIAXONE. [Concomitant]
     Active Substance: CEFTRIAXONE
     Indication: ENCEPHALITIS
     Dosage: UNK
     Route: 065
  3. VANCOMYCIN [Suspect]
     Active Substance: VANCOMYCIN
     Indication: ENCEPHALITIS
     Dosage: UNK
     Route: 065

REACTIONS (1)
  - Acute kidney injury [Unknown]
